FAERS Safety Report 6740494-X (Version None)
Quarter: 2010Q2

REPORT INFORMATION
  Report Type: 
  Country: None (occurrence: None)
  Receive Date: 20100525
  Receipt Date: 20100513
  Transmission Date: 20101027
  Serious: Yes (Hospitalization, Other)
  Sender: FDA-Public Use
  Company Number: US-GILEAD-2010-0029308

PATIENT
  Sex: Female
  Weight: 32 kg

DRUGS (11)
  1. AZTREONAM [Suspect]
     Indication: CYSTIC FIBROSIS
     Route: 055
     Dates: start: 20100305, end: 20100401
  2. ZYVOX [Concomitant]
     Dates: start: 20100222, end: 20100307
  3. PREDNISONE [Concomitant]
     Dates: start: 20100301, end: 20100307
  4. ALBUTEROL [Concomitant]
  5. PULMOZYME [Concomitant]
  6. HYPERTONIC SALINE [Concomitant]
     Route: 055
  7. ADVAIR DISKUS 100/50 [Concomitant]
  8. SINGULAIR [Concomitant]
     Dates: start: 20100301
  9. FLOVENT [Concomitant]
  10. AZITHROMYCIN [Concomitant]
  11. CREON [Concomitant]

REACTIONS (1)
  - LUNG DISORDER [None]
